FAERS Safety Report 7612070-8 (Version None)
Quarter: 2011Q3

REPORT INFORMATION
  Report Type: 
  Country: None (occurrence: None)
  Receive Date: 20110715
  Receipt Date: 20110712
  Transmission Date: 20111222
  Serious: Yes (Other)
  Sender: FDA-Public Use
  Company Number: US-TEVA-288383USA

PATIENT
  Sex: Female
  Weight: 79.45 kg

DRUGS (9)
  1. FLUOXETINE [Concomitant]
     Indication: DEPRESSION
  2. DIAZEPAM [Concomitant]
  3. TRAZODONE HCL [Concomitant]
  4. CLONAZEPAM [Concomitant]
  5. DETROL [Concomitant]
  6. PROPRANOLOL [Concomitant]
  7. LUNESTA [Concomitant]
     Indication: SLEEP DISORDER
  8. LAMOTRIGINE [Concomitant]
  9. COPAXONE [Suspect]
     Indication: MULTIPLE SCLEROSIS
     Route: 058
     Dates: start: 20040501, end: 20110601

REACTIONS (5)
  - INJECTION SITE NECROSIS [None]
  - INCORRECT ROUTE OF DRUG ADMINISTRATION [None]
  - INJECTION SITE REACTION [None]
  - SKIN LESION [None]
  - URTICARIA [None]
